FAERS Safety Report 11059960 (Version 1)
Quarter: 2015Q2

REPORT INFORMATION
  Report Type: Spontaneous
  Country: US (occurrence: US)
  Receive Date: 20150423
  Receipt Date: 20150423
  Transmission Date: 20150821
  Serious: Yes (Other)
  Sender: FDA-Public Use
  Company Number: US-AMGEN-USASP2015038413

PATIENT
  Age: 63 Year
  Sex: Female

DRUGS (5)
  1. ENBREL [Suspect]
     Active Substance: ETANERCEPT
     Indication: PSORIASIS
     Dosage: 50 MG, QWK
     Route: 065
     Dates: start: 20040801
  2. KEFLEX [Suspect]
     Active Substance: CEPHALEXIN
     Indication: ERYTHEMA
  3. KEFLEX [Suspect]
     Active Substance: CEPHALEXIN
     Indication: FEELING HOT
  4. KEFLEX [Suspect]
     Active Substance: CEPHALEXIN
     Indication: SKIN IRRITATION
  5. KEFLEX [Suspect]
     Active Substance: CEPHALEXIN
     Indication: INFECTION
     Dosage: UNK
     Route: 065

REACTIONS (5)
  - Lower limb fracture [Recovered/Resolved]
  - Drug hypersensitivity [Not Recovered/Not Resolved]
  - Incision site infection [Recovered/Resolved]
  - Injection site rash [Not Recovered/Not Resolved]
  - Urticaria [Not Recovered/Not Resolved]

NARRATIVE: CASE EVENT DATE: 2015
